FAERS Safety Report 12189328 (Version 3)
Quarter: 2016Q2

REPORT INFORMATION
  Report Type: Report from Study
  Country: ZA (occurrence: ZA)
  Receive Date: 20160317
  Receipt Date: 20160602
  Transmission Date: 20160815
  Serious: Yes (Other)
  Sender: FDA-Public Use
  Company Number: ZA-TAKEDA-2016MPI001790

PATIENT
  Age: 67 Year
  Sex: Male
  Weight: 88 kg

DRUGS (9)
  1. IXAZOMIB [Suspect]
     Active Substance: IXAZOMIB
     Indication: PLASMA CELL MYELOMA
     Dosage: 3 MG, UNK
     Route: 048
     Dates: start: 20150527, end: 20160308
  2. CRESTOR [Concomitant]
     Active Substance: ROSUVASTATIN CALCIUM
     Indication: HYPERCHOLESTEROLAEMIA
     Dosage: 10 MG, QD
     Route: 048
     Dates: start: 2012
  3. ZOBONE [Concomitant]
     Indication: METASTASES TO BONE
     Dosage: 4 MG, UNK
     Route: 042
     Dates: start: 20150624
  4. CALCIUM-SANDOZ FORTE [Concomitant]
     Active Substance: CALCIUM
     Indication: MUSCLE SPASMS
     Dosage: 1000 MG, QD
     Route: 048
     Dates: start: 20150817
  5. ECOTRIN [Concomitant]
     Active Substance: ASPIRIN
     Indication: THROMBOSIS PROPHYLAXIS
     Dosage: 81 MG, QD
     Route: 048
     Dates: start: 2012, end: 20160408
  6. SLOW MAG                           /01486809/ [Concomitant]
     Indication: MUSCLE SPASMS
     Dosage: 1070 MG, QD
     Route: 048
     Dates: start: 20150708
  7. AMLODIPINE [Concomitant]
     Active Substance: AMLODIPINE BESYLATE
     Indication: HYPERTENSION
     Dosage: 2.5 MG, QD
     Route: 048
     Dates: start: 20160310
  8. CALCIUM-SANDOZ FORTE [Concomitant]
     Active Substance: CALCIUM
     Indication: TRISMUS
  9. PRADAXA [Concomitant]
     Active Substance: DABIGATRAN ETEXILATE MESYLATE
     Indication: ARRHYTHMIA PROPHYLAXIS
     Dosage: 220 MG, QD
     Route: 048
     Dates: start: 20160409

REACTIONS (1)
  - Atrial fibrillation [Recovered/Resolved]

NARRATIVE: CASE EVENT DATE: 20160310
